FAERS Safety Report 6153514-0 (Version None)
Quarter: 2009Q2

REPORT INFORMATION
  Report Type: 
  Country: None (occurrence: None)
  Receive Date: 20090413
  Receipt Date: 20090403
  Transmission Date: 20091009
  Serious: Yes (Other)
  Sender: FDA-Public Use
  Company Number: PHEH2009US01026

PATIENT
  Sex: Female
  Weight: 87.982 kg

DRUGS (8)
  1. RECLAST [Suspect]
     Indication: OSTEOPOROSIS
     Dosage: 5 MG
     Route: 042
     Dates: start: 20081103, end: 20081103
  2. METFORMIN HCL [Concomitant]
     Dosage: UNK, UNK
  3. LEVOXYL [Concomitant]
     Dosage: UNK, UNK
  4. MULTI-VITAMINS [Concomitant]
  5. CALCIUM [Concomitant]
  6. VITAMIN D [Concomitant]
  7. JANUVIA [Concomitant]
  8. GLUCOPHAGE [Concomitant]

REACTIONS (6)
  - BACK PAIN [None]
  - HAEMATOCHEZIA [None]
  - HAEMATURIA [None]
  - MYALGIA [None]
  - PAIN IN EXTREMITY [None]
  - PYREXIA [None]
